FAERS Safety Report 6422068-3 (Version None)
Quarter: 2009Q4

REPORT INFORMATION
  Report Type: 
  Country: None (occurrence: None)
  Receive Date: 20091029
  Receipt Date: 20091029
  Transmission Date: 20100525
  Serious: Yes (Hospitalization)
  Sender: FDA-Public Use
  Company Number: None

PATIENT
  Age: 27 Year
  Sex: Male

DRUGS (1)
  1. SALSALATE [Suspect]
     Indication: PAIN
     Dosage: 1000 MG PRN PO
     Route: 048
     Dates: start: 20081219, end: 20081221

REACTIONS (4)
  - CREPITATIONS [None]
  - MALAISE [None]
  - RASH [None]
  - RHONCHI [None]
